FAERS Safety Report 4554670-8 (Version None)
Quarter: 2005Q1

REPORT INFORMATION
  Report Type: 
  Country: None (occurrence: None)
  Receive Date: 20050114
  Receipt Date: 20050105
  Transmission Date: 20050727
  Serious: Yes (Death, Hospitalization)
  Sender: FDA-Public Use
  Company Number: A-CH2002-01646

PATIENT
  Age: 37 Year
  Sex: Female
  Weight: 64 kg

DRUGS (16)
  1. TRACLEER [Suspect]
     Indication: PULMONARY HYPERTENSION
     Dosage: SEE IMAGE, ORAL
     Route: 048
     Dates: start: 20020712, end: 20020811
  2. TRACLEER [Suspect]
     Indication: PULMONARY HYPERTENSION
     Dosage: SEE IMAGE, ORAL
     Route: 048
     Dates: start: 20020812, end: 20021116
  3. TRACLEER [Suspect]
     Indication: PULMONARY HYPERTENSION
     Dosage: SEE IMAGE, ORAL
     Route: 048
     Dates: start: 20021116
  4. CITALOPRAM (CITALOPRAM) [Suspect]
     Dosage: 20 MG, ORAL
     Route: 048
     Dates: start: 20021014, end: 20021114
  5. ALPRAZOLAM [Suspect]
     Dosage: 1 TBS, ORAL
     Route: 048
     Dates: start: 20021014, end: 20021114
  6. PREDNISOLONE [Concomitant]
  7. SALMETEROL (SALMETEROL) [Concomitant]
  8. ACENOCOUMAROL (ACENOCOUMAROL.) [Concomitant]
  9. FUROSEMIDE [Concomitant]
  10. SPIRONOLACTONE [Concomitant]
  11. ILOPROST (ILOPROST) [Concomitant]
  12. OXYGEN (OXYGEN) [Concomitant]
  13. COLONY STIMULATING FACTORS [Concomitant]
  14. IRON PREPARATIONS [Concomitant]
  15. RANITIDINE [Concomitant]
  16. OMEPRAZOLE [Concomitant]

REACTIONS (8)
  - ABSCESS [None]
  - AGRANULOCYTOSIS [None]
  - DEPRESSION [None]
  - DISEASE PROGRESSION [None]
  - EPISTAXIS [None]
  - MICROCYTIC ANAEMIA [None]
  - PLATELET COUNT DECREASED [None]
  - SUBCUTANEOUS ABSCESS [None]
